FAERS Safety Report 20687547 (Version 4)
Quarter: 2024Q1

REPORT INFORMATION
  Report Type: Spontaneous
  Country: JP (occurrence: JP)
  Receive Date: 20220408
  Receipt Date: 20240323
  Transmission Date: 20240409
  Serious: Yes (Death, Life-Threatening, Hospitalization, Other)
  Sender: FDA-Public Use
  Company Number: JP-UNITED THERAPEUTICS-UNT-2022-003873

PATIENT
  Age: 19 Year
  Sex: Male
  Weight: 54.4 kg

DRUGS (9)
  1. UNITUXIN [Suspect]
     Active Substance: DINUTUXIMAB
     Indication: Neuroblastoma recurrent
     Dosage: 17.5 MG/M2, CYCLICAL (CYCLE 1)
     Route: 041
     Dates: start: 20220201, end: 20220204
  2. UNITUXIN [Suspect]
     Active Substance: DINUTUXIMAB
     Dosage: 17.5 MG/M2, CYCLICAL (CYCLE 2)
     Route: 041
     Dates: start: 20220308, end: 20220311
  3. UNITUXIN [Suspect]
     Active Substance: DINUTUXIMAB
     Dosage: 17.5 MG/M2, CYCLICAL (CYCLE 3)
     Route: 041
     Dates: start: 20231127, end: 20231127
  4. HYDROXYZINE HYDROCHLORIDE [Suspect]
     Active Substance: HYDROXYZINE HYDROCHLORIDE
     Indication: Product used for unknown indication
     Dosage: UNK
     Route: 065
  5. FILGRASTIM [Suspect]
     Active Substance: FILGRASTIM
     Indication: Neuroblastoma recurrent
     Dosage: 5 ?G/KG (CYCLE 1)
     Route: 058
     Dates: start: 20220129, end: 20220211
  6. FILGRASTIM [Suspect]
     Active Substance: FILGRASTIM
     Dosage: 5 ?G/KG (CYCLE 3)
     Route: 065
     Dates: start: 20231124, end: 20231127
  7. TECELEUKIN [Suspect]
     Active Substance: TECELEUKIN
     Indication: Neuroblastoma recurrent
     Dosage: UNK (CYCLE 2)
     Route: 041
     Dates: start: 20220308, end: 20220311
  8. FENTANYL CITRATE [Concomitant]
     Active Substance: FENTANYL CITRATE
     Indication: Prophylaxis
     Dosage: UNK
     Route: 065
     Dates: start: 20220308, end: 20220311
  9. FENTANYL CITRATE [Concomitant]
     Active Substance: FENTANYL CITRATE
     Dosage: UNK
     Route: 065
     Dates: start: 20231127, end: 20231127

REACTIONS (11)
  - Neuroblastoma recurrent [Fatal]
  - Blood pressure decreased [Recovered/Resolved]
  - Myelodysplastic syndrome [Recovered/Resolved]
  - Somnolence [Unknown]
  - Pain [Recovered/Resolved]
  - Pyrexia [Recovering/Resolving]
  - Oxygen saturation decreased [Unknown]
  - Platelet count decreased [Unknown]
  - Anaemia [Unknown]
  - Pyrexia [Not Recovered/Not Resolved]
  - Pyrexia [Recovered/Resolved]

NARRATIVE: CASE EVENT DATE: 20220201
